FAERS Safety Report 5019151-6 (Version None)
Quarter: 2006Q2

REPORT INFORMATION
  Report Type: 
  Country: None (occurrence: None)
  Receive Date: 20060531
  Receipt Date: 20060524
  Transmission Date: 20061013
  Serious: Yes (Hospitalization, Other)
  Sender: FDA-Public Use
  Company Number: CTP20060014

PATIENT
  Age: 56 Year
  Sex: Female

DRUGS (7)
  1. CITALOPRAM  UNKNOWN  UNKNOWN [Suspect]
     Indication: AGITATION
     Dosage: 20-40 MG DAILY PO
     Route: 048
     Dates: start: 20040101
  2. CITALOPRAM  UNKNOWN  UNKNOWN [Suspect]
     Indication: ANXIETY
     Dosage: 20-40 MG DAILY PO
     Route: 048
     Dates: start: 20040101
  3. LINEZOLID [Suspect]
     Indication: URINARY TRACT INFECTION ENTEROCOCCAL
     Dosage: 600MG Q12H IV
     Route: 042
     Dates: start: 20040101, end: 20040101
  4. MIRTAZAPINE [Suspect]
     Dosage: 30 MG DIALY PO
     Route: 048
     Dates: start: 20040101
  5. CEFTAZIDIME [Concomitant]
  6. ACYCLOVIR [Concomitant]
  7. MIRTAZAPINE [Concomitant]

REACTIONS (18)
  - ASPARTATE AMINOTRANSFERASE INCREASED [None]
  - ASTHENIA [None]
  - BLOOD ALKALINE PHOSPHATASE INCREASED [None]
  - BLOOD BILIRUBIN INCREASED [None]
  - BLOOD CREATINE PHOSPHOKINASE MB INCREASED [None]
  - BLOOD LACTATE DEHYDROGENASE INCREASED [None]
  - COMPLICATIONS OF TRANSPLANT SURGERY [None]
  - DRUG INTERACTION [None]
  - FEBRILE NEUTROPENIA [None]
  - HEART RATE INCREASED [None]
  - HYPERTENSION [None]
  - NEUROTOXICITY [None]
  - PNEUMONIA ASPIRATION [None]
  - RESPIRATORY DISTRESS [None]
  - SEROTONIN SYNDROME [None]
  - TREMOR [None]
  - TROPONIN INCREASED [None]
  - URINARY TRACT INFECTION ENTEROCOCCAL [None]
